FAERS Safety Report 7772149-7 (Version None)
Quarter: 2011Q3

REPORT INFORMATION
  Report Type: 
  Country: None (occurrence: None)
  Receive Date: 20110922
  Receipt Date: 20110916
  Transmission Date: 20111222
  Serious: Yes (Other)
  Sender: FDA-Public Use
  Company Number: US-ABBOTT-11P-163-0855980-00

PATIENT
  Sex: Female

DRUGS (5)
  1. HUMIRA [Suspect]
     Route: 058
     Dates: start: 20110919, end: 20110919
  2. PURINETHOL [Concomitant]
     Indication: CROHN'S DISEASE
  3. HUMIRA [Suspect]
     Indication: CROHN'S DISEASE
     Route: 058
     Dates: start: 20030101, end: 20060101
  4. PREDNISONE [Concomitant]
     Indication: CROHN'S DISEASE
  5. VYVANSE [Concomitant]
     Indication: ATTENTION DEFICIT/HYPERACTIVITY DISORDER

REACTIONS (2)
  - COLONIC FISTULA [None]
  - POSTOPERATIVE ABSCESS [None]
